FAERS Safety Report 5095154-0 (Version None)
Quarter: 2006Q3

REPORT INFORMATION
  Report Type: 
  Country: None (occurrence: None)
  Receive Date: 20060901
  Receipt Date: 20060628
  Transmission Date: 20061208
  Serious: Yes (Death)
  Sender: FDA-Public Use
  Company Number: 2006AP02963

PATIENT
  Age: 17300 Day
  Sex: Male
  Weight: 78 kg

DRUGS (17)
  1. IRESSA [Suspect]
     Indication: NON-SMALL CELL LUNG CANCER STAGE IIIA
     Route: 048
     Dates: start: 20060225, end: 20060511
  2. IRESSA [Suspect]
     Indication: ADENOSQUAMOUS CELL LUNG CANCER
     Route: 048
     Dates: start: 20060225, end: 20060511
  3. CISPLATIN [Concomitant]
     Dosage: 2 CYCLES
     Dates: start: 20050105, end: 20050131
  4. CISPLATIN [Concomitant]
     Dosage: 2 CYCLES
     Dates: start: 20050414, end: 20050512
  5. DOCETAXEL [Concomitant]
     Dosage: 2 CYCLES
     Dates: start: 20050105, end: 20050131
  6. DOCETAXEL [Concomitant]
     Dosage: 2 CYCLES
     Dates: start: 20050414, end: 20050512
  7. RADIOTHERAPY [Concomitant]
     Dosage: 70 GY TO MEDIASTINUM
     Dates: start: 20050602, end: 20050725
  8. OXYCONTIN [Concomitant]
     Indication: CANCER PAIN
     Route: 048
     Dates: start: 20060331
  9. DEPAKENE [Concomitant]
     Indication: CONVULSION PROPHYLAXIS
     Route: 048
     Dates: start: 20060403
  10. PREDONINE [Concomitant]
     Indication: METASTASES TO CENTRAL NERVOUS SYSTEM
     Route: 048
  11. PREDONINE [Concomitant]
     Route: 048
  12. TEGRETOL [Concomitant]
     Route: 048
  13. DEPAS [Concomitant]
     Route: 048
  14. EPENARD [Concomitant]
     Route: 048
  15. AZUCURENIN [Concomitant]
     Route: 048
  16. LOXONIN [Concomitant]
     Indication: CANCER PAIN
     Route: 048
  17. MYONAL [Concomitant]
     Route: 048

REACTIONS (3)
  - INTERSTITIAL LUNG DISEASE [None]
  - LYMPHANGIOSIS CARCINOMATOSA [None]
  - PNEUMOCYSTIS JIROVECI PNEUMONIA [None]
